FAERS Safety Report 5358417-7 (Version None)
Quarter: 2007Q2

REPORT INFORMATION
  Report Type: 
  Country: None (occurrence: None)
  Receive Date: 20070615
  Receipt Date: 20070606
  Transmission Date: 20071010
  Serious: Yes (Other)
  Sender: FDA-Public Use
  Company Number: PHBS2007AT09601

PATIENT
  Age: 76 Year
  Sex: Male

DRUGS (5)
  1. LUDIOMIL [Suspect]
     Indication: DEPRESSION
     Route: 065
  2. SEROXAT ^NOVO NORDISK^ [Suspect]
     Route: 065
  3. MIRTAZAPINE [Suspect]
     Route: 065
  4. QUILONORM [Suspect]
     Route: 065
  5. TRAMADOL HCL [Suspect]
     Route: 065

REACTIONS (8)
  - ANXIETY [None]
  - DELIRIUM [None]
  - HYPERHIDROSIS [None]
  - HYPERREFLEXIA [None]
  - NAUSEA [None]
  - SEROTONIN SYNDROME [None]
  - TREMOR [None]
  - UNRESPONSIVE TO STIMULI [None]
